FAERS Safety Report 7274958-X (Version None)
Quarter: 2011Q1

REPORT INFORMATION
  Report Type: 
  Country: None (occurrence: None)
  Receive Date: 20110204
  Receipt Date: 20110128
  Transmission Date: 20110831
  Serious: Yes (Other)
  Sender: FDA-Public Use
  Company Number: US-ROCHE-698681

PATIENT
  Age: 48 Year
  Sex: Female

DRUGS (3)
  1. PEGASYS [Suspect]
     Route: 058
  2. PEGASYS [Suspect]
     Dosage: FORM: PRE-FILLED SYRINGE, 30 UG FILLED FROM 180 UG VIAL
     Route: 058
     Dates: start: 20080401
  3. PEGASYS [Suspect]
     Route: 058

REACTIONS (3)
  - CATARACT [None]
  - VISUAL IMPAIRMENT [None]
  - BONE PAIN [None]
